FAERS Safety Report 5066678-7 (Version None)
Quarter: 2006Q3

REPORT INFORMATION
  Report Type: 
  Country: None (occurrence: None)
  Receive Date: 20060801
  Receipt Date: 20060725
  Transmission Date: 20061208
  Serious: Yes (Other)
  Sender: FDA-Public Use
  Company Number: US-GLAXOSMITHKLINE-A0613537A

PATIENT
  Age: 42 Year
  Sex: Female

DRUGS (17)
  1. ADVAIR DISKUS 100/50 [Suspect]
     Indication: ASTHMA
     Dosage: 1PUFF TWICE PER DAY
     Route: 055
  2. RELPAX [Concomitant]
  3. FLUOXETINE [Concomitant]
  4. OXYCODONE HCL [Concomitant]
  5. DIAMOX [Concomitant]
  6. SINGULAIR [Concomitant]
  7. FLONASE [Concomitant]
  8. FLOVENT [Concomitant]
  9. PRILOSEC [Concomitant]
  10. ALLEGRA [Concomitant]
  11. ALBUTEROL SPIROS [Concomitant]
  12. CLINDAMYCIN [Concomitant]
  13. PREDNISONE [Concomitant]
  14. CALCIUM GLUCONATE [Concomitant]
  15. VITAMIN D [Concomitant]
  16. WOMENS MULTIVITAMIN [Concomitant]
  17. HYDROCODONE [Concomitant]

REACTIONS (6)
  - ARTHRITIS [None]
  - CATARACT [None]
  - DRY EYE [None]
  - MIGRAINE [None]
  - PAPILLOEDEMA [None]
  - SEBORRHOEA [None]
